FAERS Safety Report 7623518-7 (Version None)
Quarter: 2011Q3

REPORT INFORMATION
  Report Type: 
  Country: None (occurrence: None)
  Receive Date: 20110720
  Receipt Date: 20110705
  Transmission Date: 20111222
  Serious: Yes (Hospitalization)
  Sender: FDA-Public Use
  Company Number: US-JUTA GMBH-2011-10570

PATIENT

DRUGS (5)
  1. FENTANYL [Suspect]
     Indication: PAIN
     Dosage: UNK
  2. MORPHINE SULFATE [Suspect]
     Indication: PAIN
     Dosage: UNK
  3. NALBUPHINE [Suspect]
     Indication: PAIN
     Dosage: UNK
  4. DEMEROL [Suspect]
     Indication: PAIN
     Dosage: UNK
  5. DILAUDID [Suspect]
     Indication: PAIN
     Dosage: UNK

REACTIONS (1)
  - ACUTE CHEST SYNDROME [None]
